FAERS Safety Report 16804517 (Version 2)
Quarter: 2019Q4

REPORT INFORMATION
  Report Type: Spontaneous
  Country: JP (occurrence: JP)
  Receive Date: 20190913
  Receipt Date: 20191028
  Transmission Date: 20200122
  Serious: Yes (Other)
  Sender: FDA-Public Use
  Company Number: JP-ELI_LILLY_AND_COMPANY-JP201909002259

PATIENT
  Age: 69 Year
  Sex: Male

DRUGS (6)
  1. RINDERON [BETAMETHASONE SODIUM PHOSPHATE] [Concomitant]
     Active Substance: BETAMETHASONE SODIUM PHOSPHATE
  2. NEXIUM [Concomitant]
     Active Substance: ESOMEPRAZOLE MAGNESIUM
     Route: 048
  3. TARIVID [OFLOXACIN] [Concomitant]
     Route: 001
  4. SAIKOKARYUKOTSUBOREITO [Concomitant]
     Active Substance: HERBALS
     Route: 048
  5. RHEUMATREX [Concomitant]
     Active Substance: METHOTREXATE SODIUM
  6. ZALUTIA [Suspect]
     Active Substance: TADALAFIL
     Indication: PRODUCT USED FOR UNKNOWN INDICATION
     Dosage: 5 MG, DAILY
     Route: 048
     Dates: end: 20190825

REACTIONS (1)
  - Arterial rupture [Recovered/Resolved]

NARRATIVE: CASE EVENT DATE: 201908
